FAERS Safety Report 14139657 (Version 2)
Quarter: 2018Q3

REPORT INFORMATION
  Report Type: Spontaneous
  Country: IN (occurrence: IN)
  Receive Date: 20171029
  Receipt Date: 20180920
  Transmission Date: 20181010
  Serious: Yes (Disabling, Other)
  Sender: FDA-Public Use
  Company Number: PHHY2017IN155935

PATIENT
  Age: 19 Year
  Sex: Male

DRUGS (1)
  1. TRIAMCINOLONE [Suspect]
     Active Substance: TRIAMCINOLONE
     Indication: JOINT ANKYLOSIS
     Dosage: UNK
     Route: 014

REACTIONS (6)
  - Retinal artery embolism [Unknown]
  - Embolism [Unknown]
  - Retinal artery occlusion [Not Recovered/Not Resolved]
  - Incorrect route of drug administration [Unknown]
  - Retinal ischaemia [Unknown]
  - Retinal thickening [Unknown]
